FAERS Safety Report 16193164 (Version 1)
Quarter: 2019Q2

REPORT INFORMATION
  Report Type: Spontaneous
  Country: US (occurrence: US)
  Receive Date: 20190413
  Receipt Date: 20190413
  Transmission Date: 20190711
  Serious: No
  Sender: FDA-Public Use
  Company Number: US-TEVA-2019-US-1034519

PATIENT
  Sex: Female

DRUGS (1)
  1. CARBIDOPA AND LEVODOPA [Suspect]
     Active Substance: CARBIDOPA\LEVODOPA
     Indication: PARKINSON^S DISEASE
     Route: 065

REACTIONS (7)
  - Eczema [Unknown]
  - Drug ineffective [Unknown]
  - Intentional product use issue [Unknown]
  - Feeling hot [Unknown]
  - Abnormal sensation in eye [Unknown]
  - Vision blurred [Unknown]
  - Tremor [Unknown]
